FAERS Safety Report 4562087-5 (Version None)
Quarter: 2005Q1

REPORT INFORMATION
  Report Type: 
  Country: None (occurrence: None)
  Receive Date: 20050121
  Receipt Date: 20050107
  Transmission Date: 20050727
  Serious: Yes (Other)
  Sender: FDA-Public Use
  Company Number: 2005008754

PATIENT
  Age: 74 Year
  Sex: Female

DRUGS (2)
  1. CELEBREX [Suspect]
     Indication: PAIN
     Dosage: (200 MG), ORAL
     Route: 048
  2. POTASSIUM CHLORIDE [Concomitant]

REACTIONS (5)
  - ABASIA [None]
  - BREAST CANCER FEMALE [None]
  - DRUG INEFFECTIVE [None]
  - MEDICATION ERROR [None]
  - PAIN [None]
